FAERS Safety Report 5957090-4 (Version None)
Quarter: 2008Q4

REPORT INFORMATION
  Report Type: 
  Country: None (occurrence: None)
  Receive Date: 20081118
  Receipt Date: 20081106
  Transmission Date: 20090506
  Serious: Yes (Hospitalization, Other)
  Sender: FDA-Public Use
  Company Number: AU-PFIZER INC-2008081904

PATIENT
  Age: 78 Year
  Sex: Male

DRUGS (5)
  1. VIAGRA [Suspect]
     Indication: ERECTILE DYSFUNCTION
     Route: 048
  2. NEXIUM [Concomitant]
     Indication: GASTROOESOPHAGEAL REFLUX DISEASE
     Route: 048
  3. OROXINE [Concomitant]
     Indication: HYPOTHYROIDISM
     Route: 048
  4. PANAMAX [Concomitant]
     Indication: OSTEOARTHRITIS
     Route: 048
  5. FLUTICASONE PROPIONATE [Concomitant]
     Indication: ASTHMA
     Route: 055

REACTIONS (5)
  - BALANCE DISORDER [None]
  - CLUSTER HEADACHE [None]
  - SPEECH DISORDER [None]
  - THROMBOTIC STROKE [None]
  - VISUAL IMPAIRMENT [None]
